FAERS Safety Report 9107092 (Version 2)
Quarter: 2013Q1

REPORT INFORMATION
  Report Type: Spontaneous
  Country: FR (occurrence: FR)
  Receive Date: 20130221
  Receipt Date: 20130225
  Transmission Date: 20140127
  Serious: Yes (Hospitalization, Other)
  Sender: FDA-Public Use
  Company Number: FR-PFIZER INC-2013060797

PATIENT
  Age: 80 Year
  Sex: Female

DRUGS (9)
  1. TAHOR [Suspect]
     Indication: DYSLIPIDAEMIA
     Dosage: 10 MG, DAILY
     Route: 048
     Dates: end: 20121105
  2. COUMADINE [Interacting]
     Indication: DEEP VEIN THROMBOSIS
     Dosage: UNK
     Route: 048
     Dates: start: 20120920, end: 20121030
  3. ALPRAZOLAM [Concomitant]
     Dosage: 0.25, UNITS NOT PROVIDED, UNK
  4. INIPOMP [Concomitant]
     Indication: GASTRODUODENAL ULCER
     Dosage: 20 MG, DAILY
     Route: 048
     Dates: end: 20121105
  5. LERCAN [Concomitant]
     Indication: HYPERTENSION
     Dosage: 10 MG, DAILY
     Route: 048
     Dates: end: 20121105
  6. LAROXYL [Concomitant]
     Indication: DEPRESSION
     Dosage: 10 GTT, DAILY
     Route: 048
     Dates: end: 20121101
  7. MIANSERIN [Concomitant]
     Dosage: UNK
  8. LASILIX [Concomitant]
     Dosage: UNK
  9. LEVOTHYROX [Concomitant]
     Dosage: UNK

REACTIONS (10)
  - Drug interaction [Recovered/Resolved]
  - Haemarthrosis [Recovered/Resolved]
  - Joint injury [Recovered/Resolved]
  - Joint effusion [Recovered/Resolved]
  - Dyspnoea exertional [Recovered/Resolved]
  - International normalised ratio increased [Recovered/Resolved]
  - C-reactive protein increased [Recovered/Resolved]
  - Blood creatinine increased [Recovered/Resolved]
  - Osteoarthritis [Recovered/Resolved]
  - Arthralgia [Recovered/Resolved]
